FAERS Safety Report 21168131 (Version 1)
Quarter: 2022Q3

REPORT INFORMATION
  Report Type: Spontaneous
  Country: FR (occurrence: FR)
  Receive Date: 20220803
  Receipt Date: 20220803
  Transmission Date: 20221026
  Serious: Yes (Life-Threatening, Other)
  Sender: FDA-Public Use
  Company Number: FR-SA-SAC20220718002173

PATIENT
  Age: 24 Year
  Sex: Male
  Weight: 87 kg

DRUGS (6)
  1. ETOPOSIDE [Interacting]
     Active Substance: ETOPOSIDE
     Indication: Hodgkin^s disease
     Dosage: 1200 MG, QCY
     Route: 042
     Dates: start: 20211122, end: 20211215
  2. CYCLOPHOSPHAMIDE [Interacting]
     Active Substance: CYCLOPHOSPHAMIDE
     Indication: Hodgkin^s disease
     Dosage: 2500 MG, QCY (INJECTION)
     Route: 042
     Dates: start: 20211122, end: 20211213
  3. DOXORUBICIN [Interacting]
     Active Substance: DOXORUBICIN
     Indication: Hodgkin^s disease
     Dosage: 70 MG, QCY
     Route: 042
     Dates: start: 20211122, end: 20211213
  4. PROCARBAZINE [Interacting]
     Active Substance: PROCARBAZINE
     Indication: Hodgkin^s disease
     Dosage: 1400 MG, QCY
     Route: 042
     Dates: start: 20211122, end: 20211219
  5. VINCRISTINE SULFATE [Interacting]
     Active Substance: VINCRISTINE SULFATE
     Indication: Hodgkin^s disease
     Dosage: 2 MG, QCY
     Route: 042
     Dates: start: 20211122, end: 20211213
  6. BLEOMYCIN HYDROCHLORIDE [Interacting]
     Active Substance: BLEOMYCIN HYDROCHLORIDE
     Indication: Hodgkin^s disease
     Dosage: 20 MG, QCY
     Route: 042
     Dates: start: 20211129, end: 20211220

REACTIONS (4)
  - Acute respiratory distress syndrome [Recovered/Resolved]
  - Meningitis pneumococcal [Recovered/Resolved]
  - Febrile bone marrow aplasia [Recovered/Resolved]
  - Drug interaction [Recovered/Resolved]

NARRATIVE: CASE EVENT DATE: 20211224
